FAERS Safety Report 24905199 (Version 1)
Quarter: 2025Q1

REPORT INFORMATION
  Report Type: Spontaneous
  Country: IL (occurrence: IL)
  Receive Date: 20250130
  Receipt Date: 20250130
  Transmission Date: 20250408
  Serious: Yes (Hospitalization, Other)
  Sender: SANDOZ
  Company Number: IL-SANDOZ-SDZ2025IL005018

PATIENT
  Age: 53 Year
  Sex: Male

DRUGS (1)
  1. METHOTREXATE [Suspect]
     Active Substance: METHOTREXATE
     Indication: Product used for unknown indication
     Dosage: 12.5 MG, QW
     Route: 065

REACTIONS (10)
  - Asthenia [Unknown]
  - Dizziness [Unknown]
  - Chromaturia [Unknown]
  - Toxicity to various agents [Unknown]
  - Nausea [Unknown]
  - Mouth ulceration [Unknown]
  - Hepatic enzyme increased [Recovered/Resolved]
  - Haemoglobin decreased [Recovered/Resolved]
  - Leukopenia [Recovered/Resolved]
  - Incorrect dose administered [Unknown]
